FAERS Safety Report 14869199 (Version 5)
Quarter: 2019Q1

REPORT INFORMATION
  Report Type: Report from Study
  Country: UG (occurrence: UG)
  Receive Date: 20180509
  Receipt Date: 20190128
  Transmission Date: 20190417
  Serious: Yes (Congenital Anomaly, Other)
  Sender: FDA-Public Use
  Company Number: UG-VIIV HEALTHCARE LIMITED-UG2018GSK077942

PATIENT
  Sex: Male
  Weight: 2.8 kg

DRUGS (6)
  1. FEFOL [Concomitant]
     Active Substance: FERROUS SULFATE\FOLIC ACID
     Dosage: 1 DF, UNK
     Dates: start: 20180322
  2. DOLUTEGRAVIR [Suspect]
     Active Substance: DOLUTEGRAVIR
     Indication: HIV INFECTION
     Dosage: 50 MG, QD
     Route: 064
     Dates: start: 20180322
  3. COTRIMOXAZOLE [Concomitant]
     Active Substance: SULFAMETHOXAZOLE\TRIMETHOPRIM
     Dosage: 960 MG, QD
     Dates: start: 20180322
  4. NEVIRAPINE SYRUP [Concomitant]
     Dosage: 1.5 ML, UNK
  5. LAMIVUDINE + TENOFOVIR DISOPROXIL FUMARATE [Concomitant]
     Active Substance: LAMIVUDINE\TENOFOVIR DISOPROXIL FUMARATE
     Indication: HIV INFECTION
     Dosage: UNK
     Dates: start: 20180322
  6. MULTIVITAMIN DROPS [Concomitant]
     Dosage: 0.3 ML, UNK
     Dates: start: 20180815

REACTIONS (2)
  - Talipes [Not Recovered/Not Resolved]
  - Umbilical hernia [Not Recovered/Not Resolved]

NARRATIVE: CASE EVENT DATE: 20180430
